FAERS Safety Report 9263189 (Version 3)
Quarter: 2013Q2

REPORT INFORMATION
  Report Type: Spontaneous
  Country: DE (occurrence: DE)
  Receive Date: 20130430
  Receipt Date: 20130617
  Transmission Date: 20140414
  Serious: Yes (Hospitalization, Disabling)
  Sender: FDA-Public Use
  Company Number: DE-JNJFOC-20130415339

PATIENT
  Age: 90 Year
  Sex: Female
  Weight: 57 kg

DRUGS (10)
  1. XARELTO [Suspect]
     Indication: CEREBROVASCULAR ACCIDENT PROPHYLAXIS
     Route: 048
     Dates: start: 20121120, end: 201302
  2. XARELTO [Suspect]
     Indication: ATRIAL FIBRILLATION
     Route: 048
     Dates: start: 20121120, end: 201302
  3. NOVODIGAL [Concomitant]
     Indication: ATRIAL FIBRILLATION
     Route: 065
  4. NEBIVOLOL [Concomitant]
     Indication: HYPERTENSION
     Route: 065
  5. DELIX PLUS [Concomitant]
     Indication: HYPERTENSION
     Route: 065
  6. TORASEMID [Concomitant]
     Indication: HYPERTENSION
     Route: 065
  7. SIMVASTATIN [Concomitant]
     Indication: PRODUCT USED FOR UNKNOWN INDICATION
     Route: 065
  8. MIRTAZAPIN [Concomitant]
     Indication: PRODUCT USED FOR UNKNOWN INDICATION
     Route: 065
  9. SERTRALINE [Concomitant]
     Indication: PRODUCT USED FOR UNKNOWN INDICATION
     Route: 065
  10. NOVALGIN [Concomitant]
     Indication: PRODUCT USED FOR UNKNOWN INDICATION
     Route: 065

REACTIONS (4)
  - Cerebrovascular accident [Recovering/Resolving]
  - Hemiparesis [Recovering/Resolving]
  - Dizziness [Recovering/Resolving]
  - Syncope [Recovering/Resolving]
